FAERS Safety Report 21714483 (Version 1)
Quarter: 2022Q4

REPORT INFORMATION
  Report Type: Spontaneous
  Country: IT (occurrence: IT)
  Receive Date: 20221212
  Receipt Date: 20221212
  Transmission Date: 20230113
  Serious: Yes (Other)
  Sender: FDA-Public Use
  Company Number: IT-CHEPLA-2022008750

PATIENT
  Age: 14 Year
  Sex: Female

DRUGS (2)
  1. TRETINOIN [Suspect]
     Active Substance: TRETINOIN
     Indication: Acute promyelocytic leukaemia
     Dosage: 7 CYCLES OF ATRA, 7 DAYS/WEEK, 2 WEEKS ON AND OFF
     Route: 065
  2. ARSENIC [Suspect]
     Active Substance: ARSENIC
     Indication: Acute promyelocytic leukaemia
     Dosage: 4 CYCLES ATO 5 DAYS PER WEEK, 4 WEEKS ON AND OFF
     Route: 065

REACTIONS (2)
  - Seizure [Recovered/Resolved]
  - Headache [Recovered/Resolved with Sequelae]
